FAERS Safety Report 10913227 (Version 2)
Quarter: 2015Q2

REPORT INFORMATION
  Report Type: Spontaneous
  Country: US (occurrence: US)
  Receive Date: 20150313
  Receipt Date: 20150615
  Transmission Date: 20150821
  Serious: Yes (Hospitalization, Other)
  Sender: FDA-Public Use
  Company Number: US-009507513-1109USA00298

PATIENT
  Sex: Female
  Weight: 56.69 kg

DRUGS (3)
  1. ALENDRONATE SODIUM. [Suspect]
     Active Substance: ALENDRONATE SODIUM
     Indication: BONE DENSITY DECREASED
     Dosage: 70 MG, QW
     Route: 048
     Dates: start: 20100210
  2. FOSAMAX [Suspect]
     Active Substance: ALENDRONATE SODIUM
     Indication: BONE DENSITY DECREASED
     Dosage: 70 MG, QW
     Route: 048
     Dates: start: 2003, end: 2009
  3. FOSAMAX PLUS D [Suspect]
     Active Substance: ALENDRONATE SODIUM\CHOLECALCIFEROL
     Indication: BONE DENSITY DECREASED
     Dosage: 70 MG-2800 IU, QW
     Route: 048
     Dates: start: 20060320

REACTIONS (31)
  - Adenotonsillectomy [Unknown]
  - Drug dependence [Unknown]
  - Arthralgia [Unknown]
  - Intervertebral disc displacement [Unknown]
  - Osteopenia [Unknown]
  - Dyslipidaemia [Unknown]
  - Muscle contractions involuntary [Unknown]
  - Infusion site pain [Unknown]
  - Depression [Unknown]
  - Nausea [Unknown]
  - Varicose vein [Unknown]
  - Arthritis [Unknown]
  - Hypothyroidism [Unknown]
  - Hand fracture [Unknown]
  - Uterine dilation and curettage [Unknown]
  - Gastritis [Unknown]
  - Abdominal discomfort [Unknown]
  - Drug ineffective [Unknown]
  - Open reduction of fracture [Unknown]
  - Deep vein thrombosis [Unknown]
  - Nodal osteoarthritis [Unknown]
  - Femur fracture [Unknown]
  - Staphylococcal infection [Unknown]
  - Pancreatitis relapsing [Unknown]
  - Staphylococcal osteomyelitis [Unknown]
  - Pulmonary embolism [Unknown]
  - Tenosynovitis stenosans [Unknown]
  - Osteoarthritis [Unknown]
  - Lumbar spinal stenosis [Unknown]
  - Paraesthesia [Unknown]
  - Impaired healing [Unknown]

NARRATIVE: CASE EVENT DATE: 20040128
